FAERS Safety Report 9106258 (Version 3)
Quarter: 2013Q2

REPORT INFORMATION
  Report Type: Spontaneous
  Country: US (occurrence: US)
  Receive Date: 20130221
  Receipt Date: 20130409
  Transmission Date: 20140414
  Serious: Yes (Other)
  Sender: FDA-Public Use
  Company Number: CHPA2013US003107

PATIENT
  Age: 65 Year
  Sex: Male

DRUGS (3)
  1. VOLTAREN GEL [Suspect]
     Indication: PAIN
     Dosage: UNK, UNK, PRN
     Route: 061
  2. TYLENOL ARTHRITIS EXTENDED RELIEF [Concomitant]
  3. STEROIDS NOS [Concomitant]
     Indication: PAIN
     Dosage: UNK

REACTIONS (7)
  - Pain [Recovering/Resolving]
  - Arthropathy [Recovering/Resolving]
  - Concomitant disease aggravated [Recovering/Resolving]
  - Oral pain [Not Recovered/Not Resolved]
  - Drug ineffective for unapproved indication [Unknown]
  - Therapeutic response unexpected [Unknown]
  - Drug administered at inappropriate site [Unknown]
